FAERS Safety Report 9352535 (Version 2)
Quarter: 2013Q3

REPORT INFORMATION
  Report Type: Spontaneous
  Country: US (occurrence: US)
  Receive Date: 20130618
  Receipt Date: 20130806
  Transmission Date: 20140515
  Serious: Yes (Hospitalization)
  Sender: FDA-Public Use
  Company Number: US-009507513-1306USA005926

PATIENT
  Sex: Female

DRUGS (3)
  1. COZAAR [Suspect]
     Indication: HYPERTENSION
     Dosage: SPLIT THE 100MG COZAAR AND TAKE HALF IN THE MORNING AND HALF IN THE EVENING
     Route: 048
  2. LOPRESSOR [Concomitant]
  3. HYDROCHLOROTHIAZIDE [Concomitant]

REACTIONS (4)
  - Arrhythmia [Recovering/Resolving]
  - Product odour abnormal [Unknown]
  - Product taste abnormal [Unknown]
  - Wrong technique in drug usage process [Unknown]
